FAERS Safety Report 16167971 (Version 5)
Quarter: 2019Q2

REPORT INFORMATION
  Report Type: Spontaneous
  Country: FR (occurrence: FR)
  Receive Date: 20190408
  Receipt Date: 20190521
  Transmission Date: 20190711
  Serious: Yes (Other)
  Sender: FDA-Public Use
  Company Number: FR-BEH-2019101133

PATIENT
  Age: 6 Year
  Sex: Female

DRUGS (1)
  1. HIZENTRA [Suspect]
     Active Substance: HUMAN IMMUNOGLOBULIN G
     Indication: PRODUCT USED FOR UNKNOWN INDICATION
     Dosage: 2 G, QW
     Route: 051

REACTIONS (5)
  - Pertussis [Unknown]
  - Suspected transmission of an infectious agent via product [Unknown]
  - Injection site haemorrhage [Unknown]
  - Venous injury [Unknown]
  - Diffuse alopecia [Unknown]
